FAERS Safety Report 11282266 (Version 1)
Quarter: 2015Q3

REPORT INFORMATION
  Report Type: Spontaneous
  Country: CN (occurrence: CN)
  Receive Date: 20150720
  Receipt Date: 20150720
  Transmission Date: 20151125
  Serious: Yes (Hospitalization)
  Sender: FDA-Public Use
  Company Number: CN-ROCHE-1607942

PATIENT
  Age: 8 Year
  Sex: Male
  Weight: 51.8 kg

DRUGS (4)
  1. CLONAZEPAM. [Suspect]
     Active Substance: CLONAZEPAM
     Indication: SEIZURE
     Dosage: 0.25 MG IN THE MORNING AND 0.125 MG IN THE EVENING
     Route: 048
  2. SODIUM VALPROATE [Suspect]
     Active Substance: VALPROATE SODIUM
     Indication: SEIZURE
     Route: 065
  3. LAMOTRIGINE. [Suspect]
     Active Substance: LAMOTRIGINE
     Indication: SEIZURE
     Route: 065
  4. OXCARBAZEPINE. [Suspect]
     Active Substance: OXCARBAZEPINE
     Indication: SEIZURE
     Route: 065

REACTIONS (7)
  - Pneumonia mycoplasmal [Unknown]
  - Obliterative bronchiolitis [Unknown]
  - Muscular weakness [Unknown]
  - Abasia [Unknown]
  - Drug reaction with eosinophilia and systemic symptoms [Unknown]
  - Dyspnoea [Unknown]
  - Hypotonia [Unknown]
